FAERS Safety Report 7931088-9 (Version None)
Quarter: 2011Q4

REPORT INFORMATION
  Report Type: 
  Country: None (occurrence: None)
  Receive Date: 20111121
  Receipt Date: 20111114
  Transmission Date: 20120403
  Serious: Yes (Hospitalization, Other)
  Sender: FDA-Public Use
  Company Number: DK-TYCO HEALTHCARE/MALLINCKRODT-T201100801

PATIENT
  Sex: Male

DRUGS (3)
  1. RAMIPRIL [Suspect]
     Indication: CARDIAC FAILURE
     Dosage: 1.25 MG
     Route: 048
  2. RAMIPRIL [Suspect]
     Dosage: UNK
  3. OPTIRAY 160 [Suspect]
     Dosage: UNK
     Dates: start: 20100804

REACTIONS (11)
  - URINARY RETENTION [None]
  - ENTEROSTOMY [None]
  - INTERNATIONAL NORMALISED RATIO INCREASED [None]
  - DEHYDRATION [None]
  - LUNG INFILTRATION [None]
  - RENAL FAILURE [None]
  - ANURIA [None]
  - EMOTIONAL DISTRESS [None]
  - BLOOD CREATININE INCREASED [None]
  - CARDIAC FAILURE [None]
  - PNEUMONIA [None]
